FAERS Safety Report 8097145-4 (Version None)
Quarter: 2012Q1

REPORT INFORMATION
  Report Type: 
  Country: None (occurrence: None)
  Receive Date: 20120129
  Receipt Date: 20111121
  Transmission Date: 20120608
  Serious: No
  Sender: FDA-Public Use
  Company Number: US-ABBOTT-11P-163-0876608-00

PATIENT
  Age: 31 Year
  Sex: Male

DRUGS (5)
  1. OMEPRAZOLE [Concomitant]
     Indication: GASTROOESOPHAGEAL REFLUX DISEASE
  2. LORTAB [Concomitant]
     Indication: PAIN
     Dosage: 7.5/500, AS NEEDED
  3. HUMIRA [Suspect]
     Indication: CROHN'S DISEASE
     Dates: start: 20111025
  4. VITAMIN B-12 [Concomitant]
     Indication: PRODUCT USED FOR UNKNOWN INDICATION
  5. IRON [Concomitant]
     Indication: ANAEMIA

REACTIONS (1)
  - INJECTION SITE PAIN [None]
